FAERS Safety Report 12111845 (Version 1)
Quarter: 2016Q1

REPORT INFORMATION
  Report Type: Report from Study
  Country: US (occurrence: US)
  Receive Date: 20160224
  Receipt Date: 20160224
  Transmission Date: 20160526
  Serious: Yes (Hospitalization, Other)
  Sender: FDA-Public Use
  Company Number: US-AMGEN-USASL2016003617

PATIENT
  Age: 80 Year
  Sex: Female

DRUGS (1)
  1. PROLIA [Suspect]
     Active Substance: DENOSUMAB
     Indication: OSTEOPOROSIS POSTMENOPAUSAL
     Dosage: Q6MO
     Route: 065

REACTIONS (10)
  - Pain in jaw [Unknown]
  - Bone disorder [Unknown]
  - Foot fracture [Unknown]
  - Crying [Unknown]
  - Arthralgia [Unknown]
  - Pruritus [Recovered/Resolved]
  - Erythema [Unknown]
  - Arthropathy [Unknown]
  - Denture wearer [Unknown]
  - Pain [Unknown]
